FAERS Safety Report 22296361 (Version 1)
Quarter: 2023Q2

REPORT INFORMATION
  Report Type: Spontaneous
  Country: US (occurrence: US)
  Receive Date: 20230508
  Receipt Date: 20230508
  Transmission Date: 20230722
  Serious: No
  Sender: FDA-Public Use
  Company Number: US-GALDERMA-US2023005426

PATIENT
  Sex: Female

DRUGS (3)
  1. DIFFERIN GEL [Suspect]
     Active Substance: ADAPALENE
     Indication: Product used for unknown indication
     Dosage: 1 DOSAGE FORM
     Route: 061
  2. PARODONTAX [CHLORHEXIDINE] [Concomitant]
     Indication: Product used for unknown indication
     Dosage: UNK DOSAGE FORM
     Route: 065
  3. SENSODYNE [SODIUM FLUORIDE] [Concomitant]
     Indication: Product used for unknown indication
     Route: 065

REACTIONS (2)
  - Skin mass [Not Recovered/Not Resolved]
  - Accidental exposure to product [Recovered/Resolved]
